FAERS Safety Report 12358583 (Version 1)
Quarter: 2016Q2

REPORT INFORMATION
  Report Type: Spontaneous
  Country: US (occurrence: None)
  Receive Date: 20160511
  Receipt Date: 20160511
  Transmission Date: 20160815
  Serious: Yes (Life-Threatening, Disabling)
  Sender: FDA-Public Use
  Company Number: None

PATIENT
  Age: 31 Year
  Sex: Female
  Weight: 131.54 kg

DRUGS (3)
  1. BOTOX [Suspect]
     Active Substance: ONABOTULINUMTOXINA
     Indication: MIGRAINE
     Dosage: 100 UNITS  EVERY 3 MONTHS  GIVEN INTO/UNDER THE SKIN
     Dates: start: 20160316, end: 20160331
  2. WOMEN^S MULTIVITAMIN [Concomitant]
  3. VERAPAMIL [Concomitant]
     Active Substance: VERAPAMIL HYDROCHLORIDE

REACTIONS (3)
  - Drug ineffective [None]
  - Heart rate increased [None]
  - Peripheral coldness [None]

NARRATIVE: CASE EVENT DATE: 20160316
